FAERS Safety Report 15153176 (Version 1)
Quarter: 2018Q3

REPORT INFORMATION
  Report Type: Spontaneous
  Country: GB (occurrence: GB)
  Receive Date: 20180717
  Receipt Date: 20180717
  Transmission Date: 20181010
  Serious: Yes (Other)
  Sender: FDA-Public Use
  Company Number: GB-TEVA-2018-GB-927932

PATIENT
  Age: 84 Year
  Sex: Male

DRUGS (19)
  1. SANDO?K [Concomitant]
     Active Substance: POTASSIUM BICARBONATE\POTASSIUM CHLORIDE
  2. LACTULOSE. [Concomitant]
     Active Substance: LACTULOSE
  3. BUMETANIDE. [Concomitant]
     Active Substance: BUMETANIDE
  4. CASSIA [Concomitant]
  5. DIGOXIN. [Concomitant]
     Active Substance: DIGOXIN
  6. RIFAMPICIN [Concomitant]
     Active Substance: RIFAMPIN
  7. PARACETAMOL [Concomitant]
     Active Substance: ACETAMINOPHEN
  8. PREDNISOLONE. [Concomitant]
     Active Substance: PREDNISOLONE
  9. CLOPIDOGREL [Concomitant]
     Active Substance: CLOPIDOGREL BISULFATE
  10. LAXIDO [Concomitant]
     Active Substance: POLYETHYLENE GLYCOL 3350\POTASSIUM CHLORIDE\SODIUM BICARBONATE\SODIUM CHLORIDE
  11. FELODIPINE. [Concomitant]
     Active Substance: FELODIPINE
  12. ISOSORBIDE MONONITRATE. [Concomitant]
     Active Substance: ISOSORBIDE MONONITRATE
  13. ATORVASTATIN [Suspect]
     Active Substance: ATORVASTATIN
     Route: 048
  14. CODEINE [Concomitant]
     Active Substance: CODEINE
  15. GLYCERYL TRINITRATE [Concomitant]
     Active Substance: NITROGLYCERIN
  16. NITROFURANTOIN. [Concomitant]
     Active Substance: NITROFURANTOIN
  17. DAPTOMYCIN. [Concomitant]
     Active Substance: DAPTOMYCIN
  18. BISOPROLOL FUMARATE. [Concomitant]
     Active Substance: BISOPROLOL FUMARATE
  19. LANSOPRAZOLE. [Concomitant]
     Active Substance: LANSOPRAZOLE

REACTIONS (1)
  - Tendonitis [Not Recovered/Not Resolved]

NARRATIVE: CASE EVENT DATE: 20180604
